FAERS Safety Report 8171128-8 (Version None)
Quarter: 2012Q1

REPORT INFORMATION
  Report Type: 
  Country: None (occurrence: None)
  Receive Date: 20120228
  Receipt Date: 20120224
  Transmission Date: 20120608
  Serious: Yes (Death)
  Sender: FDA-Public Use
  Company Number: US-PFIZER INC-2012048671

PATIENT
  Sex: Female
  Weight: 52.834 kg

DRUGS (7)
  1. CP-751,871 [Suspect]
     Indication: NON-SMALL CELL LUNG CANCER
     Dosage: 1136 MG, CYCLIC, EVERY 3 WEEKS
     Route: 042
     Dates: start: 20090608, end: 20111109
  2. PACLITAXEL [Suspect]
     Indication: NON-SMALL CELL LUNG CANCER
     Dosage: 258 MG, CYCLIC, EVERY 3 WEEKS
     Route: 042
     Dates: start: 20090608, end: 20091022
  3. NORCO [Concomitant]
     Indication: PAIN
     Dosage: 10/325 MG, EVERY 4 HOUR PRN (AS NEEDED)
     Route: 048
     Dates: start: 20091022
  4. MEGACE [Concomitant]
     Indication: DECREASED APPETITE
     Dosage: 5 ML, 1X/DAY
     Route: 048
     Dates: start: 20100722
  5. CARBOPLATIN [Suspect]
     Indication: NON-SMALL CELL LUNG CANCER
     Dosage: 484 MG, CYCLIC, EVERY 3 WEEKS
     Route: 042
     Dates: start: 20090608, end: 20091022
  6. SYNTHROID [Concomitant]
     Indication: HYPOTHYROIDISM
     Dosage: 75 MG, 1X/DAY
     Route: 048
     Dates: start: 20061215
  7. LOMOTIL [Concomitant]
     Indication: DIARRHOEA
     Dosage: 2.5 MG, AS NEEDED
     Route: 048
     Dates: start: 20100514

REACTIONS (1)
  - DEATH [None]
